FAERS Safety Report 19025639 (Version 1)
Quarter: 2021Q1

REPORT INFORMATION
  Report Type: Not Available
  Country: DE (occurrence: DE)
  Receive Date: 20210318
  Receipt Date: 20210318
  Transmission Date: 20210420
  Serious: Yes (Other)
  Sender: FDA-Public Use
  Company Number: DE-LEO PHARMA-335311

PATIENT
  Age: 30 Year
  Sex: Male
  Weight: 75 kg

DRUGS (2)
  1. DAIVOBET [Suspect]
     Active Substance: BETAMETHASONE DIPROPIONATE\CALCIPOTRIENE
     Indication: PSORIASIS
     Dosage: 50 MICROGRAM/G + 0.5 MG/G
     Route: 061
     Dates: start: 20201227, end: 20210105
  2. DAIVOBET [Suspect]
     Active Substance: BETAMETHASONE DIPROPIONATE\CALCIPOTRIENE
     Indication: PSORIASIS
     Dosage: 50 MICROGRAM/G + 0.5 MG/G
     Route: 061
     Dates: start: 20201227, end: 20210105

REACTIONS (3)
  - Papilloma viral infection [Recovered/Resolved with Sequelae]
  - Product administered at inappropriate site [Unknown]
  - Anogenital warts [Recovered/Resolved with Sequelae]

NARRATIVE: CASE EVENT DATE: 20210106
